FAERS Safety Report 4382953-3 (Version None)
Quarter: 2004Q2

REPORT INFORMATION
  Report Type: 
  Country: None (occurrence: None)
  Receive Date: 20040622
  Receipt Date: 20030919
  Transmission Date: 20050107
  Serious: Yes (Hospitalization)
  Sender: FDA-Public Use
  Company Number: US-MERCK-0309USA02381

PATIENT
  Age: 44 Year
  Sex: Male
  Weight: 63 kg

DRUGS (9)
  1. CANNABIS [Concomitant]
     Indication: PAIN
     Route: 065
     Dates: start: 19930101
  2. LORAZEPAM [Concomitant]
     Route: 065
  3. ORAMORPH SR [Concomitant]
     Indication: PAIN
     Route: 065
  4. PROTONIX [Concomitant]
     Indication: GASTRIC DISORDER
     Route: 065
  5. VIOXX [Suspect]
     Indication: SWELLING
     Route: 048
     Dates: start: 20020726, end: 20020901
  6. VIOXX [Suspect]
     Route: 048
  7. VIOXX [Suspect]
     Indication: FALL
     Route: 048
     Dates: start: 20020726, end: 20020901
  8. VIOXX [Suspect]
     Route: 048
  9. AMBIEN [Concomitant]
     Route: 065

REACTIONS (22)
  - ABDOMINAL PAIN [None]
  - ANXIETY [None]
  - CHILLS [None]
  - DEPRESSION [None]
  - DYSPEPSIA [None]
  - DYSPHAGIA [None]
  - EMOTIONAL DISTRESS [None]
  - FEELING HOT AND COLD [None]
  - GASTROINTESTINAL HAEMORRHAGE [None]
  - GASTROOESOPHAGEAL REFLUX DISEASE [None]
  - HAEMATEMESIS [None]
  - JOINT EFFUSION [None]
  - LEUKOCYTOSIS [None]
  - LIGAMENT INJURY [None]
  - LUMBAR RADICULOPATHY [None]
  - NAUSEA [None]
  - OEDEMA PERIPHERAL [None]
  - OVERDOSE [None]
  - PYREXIA [None]
  - RENAL PAIN [None]
  - SLEEP DISORDER [None]
  - VOMITING [None]
